FAERS Safety Report 7268087-9 (Version None)
Quarter: 2011Q1

REPORT INFORMATION
  Report Type: 
  Country: None (occurrence: None)
  Receive Date: 20110201
  Receipt Date: 20110127
  Transmission Date: 20110831
  Serious: Yes (Other)
  Sender: FDA-Public Use
  Company Number: US-PFIZER INC-2011020353

PATIENT
  Sex: Female

DRUGS (2)
  1. EFFEXOR [Suspect]
     Indication: ATTENTION DEFICIT/HYPERACTIVITY DISORDER
     Dosage: UNK
  2. LORTAB [Concomitant]
     Indication: PAIN
     Dosage: UNK

REACTIONS (2)
  - POST PROCEDURAL HAEMORRHAGE [None]
  - TOOTH DISORDER [None]
